FAERS Safety Report 12540658 (Version 2)
Quarter: 2016Q4

REPORT INFORMATION
  Report Type: Spontaneous
  Country: US (occurrence: US)
  Receive Date: 20160708
  Receipt Date: 20161012
  Transmission Date: 20170207
  Serious: No
  Sender: FDA-Public Use
  Company Number: US-TEVA-653971USA

PATIENT
  Age: 47 Year
  Sex: Male

DRUGS (4)
  1. VENLAFAXINE [Concomitant]
     Active Substance: VENLAFAXINE HYDROCHLORIDE
  2. LOPRESSOR [Concomitant]
     Active Substance: METOPROLOL TARTRATE
  3. VERAPAMIL [Concomitant]
     Active Substance: VERAPAMIL HYDROCHLORIDE
  4. ZECUITY [Suspect]
     Active Substance: SUMATRIPTAN SUCCINATE
     Indication: MIGRAINE
     Route: 062
     Dates: start: 20160417

REACTIONS (6)
  - Drug effect incomplete [Unknown]
  - Application site bruise [Recovered/Resolved]
  - Product adhesion issue [Unknown]
  - Application site paraesthesia [Recovered/Resolved]
  - Application site erythema [Recovered/Resolved]
  - Application site discolouration [Recovered/Resolved]

NARRATIVE: CASE EVENT DATE: 20160417
